FAERS Safety Report 21934306 (Version 2)
Quarter: 2023Q2

REPORT INFORMATION
  Report Type: Spontaneous
  Country: US (occurrence: US)
  Receive Date: 20230201
  Receipt Date: 20230403
  Transmission Date: 20230722
  Serious: Yes (Hospitalization, Other)
  Sender: FDA-Public Use
  Company Number: US-ABBVIE-4290497

PATIENT
  Age: 75 Year
  Sex: Male
  Weight: 79 kg

DRUGS (2)
  1. IMBRUVICA [Suspect]
     Active Substance: IBRUTINIB
     Indication: Lymphoplasmacytoid lymphoma/immunocytoma
     Route: 048
     Dates: start: 20191122
  2. SPIRONOLACTONE [Concomitant]
     Active Substance: SPIRONOLACTONE
     Indication: Fluid retention

REACTIONS (5)
  - Pneumonia [Recovering/Resolving]
  - Heart rate decreased [Unknown]
  - Pulse abnormal [Unknown]
  - Musculoskeletal stiffness [Recovering/Resolving]
  - Implantable defibrillator insertion [Not Recovered/Not Resolved]

NARRATIVE: CASE EVENT DATE: 20230108
